FAERS Safety Report 12677407 (Version 2)
Quarter: 2016Q4

REPORT INFORMATION
  Report Type: Spontaneous
  Country: BR (occurrence: BR)
  Receive Date: 20160823
  Receipt Date: 20161005
  Transmission Date: 20170207
  Serious: Yes (Other)
  Sender: FDA-Public Use
  Company Number: BR-ELI_LILLY_AND_COMPANY-BR201607000639

PATIENT
  Age: 42 Year
  Sex: Male
  Weight: 78 kg

DRUGS (3)
  1. LANTUS [Concomitant]
     Active Substance: INSULIN GLARGINE
     Dosage: UNK, UNKNOWN
     Route: 065
  2. HUMALOG [Suspect]
     Active Substance: INSULIN LISPRO
     Indication: TYPE 1 DIABETES MELLITUS
     Dosage: UNK, PRN
     Route: 058
  3. TRESIBA [Concomitant]
     Active Substance: INSULIN DEGLUDEC
     Dosage: UNK, UNKNOWN
     Route: 065

REACTIONS (6)
  - Injection site haemorrhage [Unknown]
  - Hyperglycaemia [Unknown]
  - Hypoglycaemia [Not Recovered/Not Resolved]
  - Blood glucose increased [Unknown]
  - Injection site haematoma [Unknown]
  - Hypoglycaemic unconsciousness [Unknown]

NARRATIVE: CASE EVENT DATE: 20160629
